FAERS Safety Report 9144640 (Version 2)
Quarter: 2013Q1

REPORT INFORMATION
  Report Type: Spontaneous
  Country: FR (occurrence: FR)
  Receive Date: 20130306
  Receipt Date: 20130312
  Transmission Date: 20140127
  Serious: Yes (Other)
  Sender: FDA-Public Use
  Company Number: FR-PFIZER INC-2013074161

PATIENT
  Age: 82 Year
  Sex: Female

DRUGS (10)
  1. MEDROL [Suspect]
     Indication: PRODUCT USED FOR UNKNOWN INDICATION
     Dosage: 16 MG, 2X/DAY
     Route: 048
     Dates: start: 20121208, end: 20121211
  2. ORELOX [Interacting]
     Indication: PRODUCT USED FOR UNKNOWN INDICATION
     Dosage: 100 MG, 2X/DAY
     Route: 048
     Dates: start: 20121208, end: 20121212
  3. PREVISCAN [Interacting]
     Indication: ATRIAL FIBRILLATION
     Dosage: 20 MG, 1X/DAY
     Route: 048
     Dates: start: 2009, end: 20121214
  4. PREVISCAN [Interacting]
     Indication: ARRHYTHMIA SUPRAVENTRICULAR
  5. HEMIGOXINE [Concomitant]
     Dosage: UNK
     Dates: start: 2011
  6. LASILIX [Concomitant]
     Dosage: 40
     Dates: start: 2011
  7. TAHOR [Concomitant]
     Dosage: 20
     Dates: start: 2011
  8. AMIODARONE [Concomitant]
     Dosage: 200 MG, UNK
  9. FOSINOPRIL [Concomitant]
     Dosage: 10 MG, UNK
  10. TARDYFERON B9 [Concomitant]
     Dosage: UNK

REACTIONS (2)
  - International normalised ratio increased [Recovered/Resolved]
  - Drug interaction [Recovered/Resolved]
